FAERS Safety Report 16107937 (Version 1)
Quarter: 2019Q1

REPORT INFORMATION
  Report Type: Report from Study
  Country: CH (occurrence: CH)
  Receive Date: 20190322
  Receipt Date: 20190322
  Transmission Date: 20190418
  Serious: Yes (Other)
  Sender: FDA-Public Use
  Company Number: PHHY2019CH049264

PATIENT
  Age: 70 Year
  Sex: Male

DRUGS (8)
  1. VALTREX [Concomitant]
     Active Substance: VALACYCLOVIR HYDROCHLORIDE
     Indication: HERPES SIMPLEX
     Dosage: 500 MG, BID
     Route: 065
     Dates: start: 20180924
  2. ASPIRIN. [Concomitant]
     Active Substance: ASPIRIN
     Indication: PROPHYLAXIS
     Dosage: 100 MG, QD
     Route: 065
     Dates: start: 20180810
  3. DIFLUCAN [Concomitant]
     Active Substance: FLUCONAZOLE
     Indication: PRODUCT USED FOR UNKNOWN INDICATION
     Dosage: DOSE 200, UNITS UNKNOWN
     Route: 065
     Dates: start: 20181030, end: 20181030
  4. JAKAVI [Suspect]
     Active Substance: RUXOLITINIB
     Indication: PRODUCT USED FOR UNKNOWN INDICATION
     Dosage: DOSE 30, UNITS UNKNOWN
     Route: 065
     Dates: start: 20181022, end: 20181118
  5. CO-CANDESARTAN SANDOZ [Suspect]
     Active Substance: CANDESARTAN CILEXETIL\HYDROCHLOROTHIAZIDE
     Indication: HYPERTENSION
     Dosage: 20.5 MG, QD
     Route: 065
  6. CANDESARTAN. [Concomitant]
     Active Substance: CANDESARTAN
     Indication: HYPERTONIA
     Dosage: 20.5 MG, QD
     Route: 065
  7. JAKAVI [Suspect]
     Active Substance: RUXOLITINIB
     Dosage: UNK (DOSE 40, UNITS UNKNOWN)
     Route: 065
     Dates: start: 20181119
  8. JAKAVI [Suspect]
     Active Substance: RUXOLITINIB
     Dosage: DOSE 20, UNITS UNKNOWN
     Route: 065
     Dates: start: 20180924, end: 20181021

REACTIONS (1)
  - Helicobacter infection [Recovered/Resolved]

NARRATIVE: CASE EVENT DATE: 20181030
